FAERS Safety Report 22400474 (Version 3)
Quarter: 2023Q2

REPORT INFORMATION
  Report Type: Spontaneous
  Country: CH (occurrence: CH)
  Receive Date: 20230602
  Receipt Date: 20230607
  Transmission Date: 20230722
  Serious: Yes (Other)
  Sender: FDA-Public Use
  Company Number: None

PATIENT
  Age: 63 Year
  Sex: Female
  Weight: 69.3 kg

DRUGS (4)
  1. CANCIDAS [Suspect]
     Active Substance: CASPOFUNGIN ACETATE
     Indication: Abdominal abscess
     Dosage: 50 MG 1X/DAY (QD)
     Route: 042
     Dates: start: 20230325
  2. METAMIZOLE [Suspect]
     Active Substance: METAMIZOLE
     Indication: Cancer pain
     Dosage: 500 MG, EVERY 8 HOURS (Q8H) (ALSO REPORTED AS 3X/DAY)
     Route: 042
     Dates: start: 20230321, end: 20230412
  3. PIPERACILLIN SODIUM\TAZOBACTAM SODIUM [Suspect]
     Active Substance: PIPERACILLIN SODIUM\TAZOBACTAM SODIUM
     Indication: Abdominal abscess
     Dosage: PIPERACILLIN SODIUM (+) TAZOBACTAM SODIUM (TAZOBAC)
     Route: 042
     Dates: start: 20230309, end: 20230323
  4. PIPERACILLIN SODIUM\TAZOBACTAM SODIUM [Suspect]
     Active Substance: PIPERACILLIN SODIUM\TAZOBACTAM SODIUM
     Dosage: PIPERACILLIN SODIUM (+) TAZOBACTAM SODIUM (TAZOBAC)
     Route: 042
     Dates: start: 20230323

REACTIONS (1)
  - Agranulocytosis [Unknown]

NARRATIVE: CASE EVENT DATE: 20230411
